FAERS Safety Report 5305523-9 (Version None)
Quarter: 2007Q2

REPORT INFORMATION
  Report Type: 
  Country: None (occurrence: None)
  Receive Date: 20070424
  Receipt Date: 20060508
  Transmission Date: 20071010
  Serious: No
  Sender: FDA-Public Use
  Company Number: US-UCBSA-8016548

PATIENT
  Age: 54 Year
  Sex: Female

DRUGS (5)
  1. FLOVENT [Suspect]
     Indication: ASTHMA
     Route: 055
     Dates: start: 20050101
  2. ZYRTEC [Suspect]
     Indication: MULTIPLE ALLERGIES
     Dosage: 10MG PER DAY
     Route: 048
     Dates: start: 20010101
  3. NASONEX [Suspect]
     Indication: MULTIPLE ALLERGIES
     Route: 065
     Dates: start: 20050101
  4. SINGULAIR [Suspect]
     Indication: ASTHMA
     Route: 065
     Dates: start: 20050101
  5. CLARITIN-D [Suspect]
     Indication: MULTIPLE ALLERGIES
     Route: 065
     Dates: start: 20050101, end: 20050101

REACTIONS (6)
  - BLOOD PRESSURE INCREASED [None]
  - DRUG EFFECT DECREASED [None]
  - DRUG INTERACTION [None]
  - FEELING ABNORMAL [None]
  - SOMNOLENCE [None]
  - TOTAL LUNG CAPACITY DECREASED [None]
